FAERS Safety Report 11925750 (Version 1)
Quarter: 2016Q1

REPORT INFORMATION
  Report Type: Spontaneous
  Country: US (occurrence: US)
  Receive Date: 20160118
  Receipt Date: 20160118
  Transmission Date: 20160526
  Serious: No
  Sender: FDA-Public Use
  Company Number: US-B.I. PHARMACEUTICALS,INC./RIDGEFIELD-2016-BI-00982BP

PATIENT
  Age: 48 Year
  Sex: Female
  Weight: 43.54 kg

DRUGS (1)
  1. DULCOGAS [Suspect]
     Active Substance: DIMETHICONE
     Indication: FLATULENCE
     Dosage: 2 ANZ
     Route: 048
     Dates: start: 20151230, end: 20151231

REACTIONS (1)
  - Drug ineffective [Recovered/Resolved]

NARRATIVE: CASE EVENT DATE: 20151230
